FAERS Safety Report 8571432-5 (Version None)
Quarter: 2012Q3

REPORT INFORMATION
  Report Type: 
  Country: None (occurrence: None)
  Receive Date: 20120806
  Receipt Date: 20120726
  Transmission Date: 20120928
  Serious: Yes (Hospitalization)
  Sender: FDA-Public Use
  Company Number: CA-JNJFOC-20120713816

PATIENT
  Sex: Male

DRUGS (7)
  1. TRAMADOL HCL [Concomitant]
     Indication: ARTHRALGIA
     Route: 048
     Dates: start: 20120611
  2. FOLIC ACID [Concomitant]
     Route: 048
     Dates: start: 20050101
  3. LYRICA [Concomitant]
     Indication: ARTHRALGIA
     Route: 048
     Dates: start: 20090810
  4. METHOTREXATE [Concomitant]
     Indication: PSORIATIC ARTHROPATHY
     Route: 058
     Dates: start: 20050501
  5. ASPIRIN [Concomitant]
     Route: 048
     Dates: start: 20120620
  6. REMICADE [Suspect]
     Indication: PRODUCT USED FOR UNKNOWN INDICATION
     Route: 042
  7. EZETIMIBE [Concomitant]
     Indication: BLOOD CHOLESTEROL
     Route: 048
     Dates: start: 20120620

REACTIONS (1)
  - CAROTID ENDARTERECTOMY [None]
